FAERS Safety Report 6857343-1 (Version None)
Quarter: 2010Q3

REPORT INFORMATION
  Report Type: 
  Country: None (occurrence: None)
  Receive Date: 20100719
  Receipt Date: 20100707
  Transmission Date: 20110219
  Serious: Yes (Hospitalization)
  Sender: FDA-Public Use
  Company Number: AT-WATSON-2010-09270

PATIENT
  Age: 72 Year
  Sex: Female

DRUGS (2)
  1. FENTANYL CITRATE [Suspect]
     Indication: PAIN
     Dosage: 100 MCG/72 HOURS
     Route: 062
  2. FENTANYL CITRATE [Suspect]
     Dosage: 75 MCG/72 HOURS
     Route: 062

REACTIONS (4)
  - CLOSTRIDIUM TEST POSITIVE [None]
  - DRUG INEFFECTIVE [None]
  - NARCOTIC INTOXICATION [None]
  - RENAL FAILURE ACUTE [None]
